FAERS Safety Report 10873517 (Version 1)
Quarter: 2015Q1

REPORT INFORMATION
  Report Type: Spontaneous
  Country: JP (occurrence: JP)
  Receive Date: 20150227
  Receipt Date: 20150227
  Transmission Date: 20150721
  Serious: Yes (Life-Threatening)
  Sender: FDA-Public Use
  Company Number: JP-ASTRAZENECA-2015SE16533

PATIENT
  Age: 79 Year
  Sex: Female

DRUGS (5)
  1. DROPERIDOL. [Concomitant]
     Active Substance: DROPERIDOL
     Indication: NERVE BLOCK
     Route: 008
  2. ANAPEINE [Suspect]
     Active Substance: ROPIVACAINE HYDROCHLORIDE
     Indication: NERVE BLOCK
     Route: 008
  3. ANAPEINE [Suspect]
     Active Substance: ROPIVACAINE HYDROCHLORIDE
     Indication: NERVE BLOCK
     Dosage: 2MG/ML
     Route: 008
  4. HYPNOTICS AND SEDATIVES, ANTIANXIETICS [Concomitant]
     Indication: SEDATION
     Dosage: DOSE UNKNOWN
     Route: 065
  5. FENTANYL. [Concomitant]
     Active Substance: FENTANYL
     Indication: NERVE BLOCK
     Route: 008

REACTIONS (3)
  - Cardiac arrest [Recovered/Resolved]
  - Loss of consciousness [Recovered/Resolved]
  - Atrioventricular block complete [Recovered/Resolved]
